FAERS Safety Report 6126307-8 (Version None)
Quarter: 2009Q1

REPORT INFORMATION
  Report Type: 
  Country: None (occurrence: None)
  Receive Date: 20090320
  Receipt Date: 20090316
  Transmission Date: 20090719
  Serious: Yes (Hospitalization)
  Sender: FDA-Public Use
  Company Number: US-MERCK-0903USA02723

PATIENT
  Sex: Female

DRUGS (12)
  1. ZETIA [Suspect]
     Route: 048
     Dates: start: 20040101
  2. LIPITOR [Suspect]
     Route: 065
  3. CRESTOR [Suspect]
     Route: 065
  4. DIOVAN [Concomitant]
     Route: 065
     Dates: start: 20030101
  5. DIGOXIN [Concomitant]
     Route: 065
     Dates: start: 20040101
  6. PLAVIX [Concomitant]
     Route: 065
     Dates: start: 20040101
  7. COREG [Concomitant]
     Route: 065
     Dates: start: 20040101
  8. BUMEX [Concomitant]
     Route: 065
     Dates: start: 20040101
  9. PRILOSEC [Concomitant]
     Route: 048
     Dates: start: 20040101
  10. NITROGLYCERIN [Concomitant]
     Route: 065
     Dates: start: 20040101
  11. AMLODIPINE BESYLATE [Concomitant]
     Route: 065
     Dates: start: 20040101
  12. AMIODARONE [Concomitant]
     Route: 065
     Dates: start: 20040101

REACTIONS (5)
  - DIZZINESS [None]
  - DRUG INEFFECTIVE [None]
  - MALAISE [None]
  - MUSCULAR WEAKNESS [None]
  - VOMITING [None]
